FAERS Safety Report 22605740 (Version 1)
Quarter: 2023Q2

REPORT INFORMATION
  Report Type: Spontaneous
  Country: US (occurrence: None)
  Receive Date: 20230614
  Receipt Date: 20230614
  Transmission Date: 20230721
  Serious: Yes (Hospitalization)
  Sender: FDA-Public Use
  Company Number: None

PATIENT
  Age: 64 Year
  Sex: Male

DRUGS (1)
  1. ATORVASTATIN [Suspect]
     Active Substance: ATORVASTATIN
     Dosage: FREQUENCY : DAILY;?
     Route: 048

REACTIONS (4)
  - Cerebrovascular accident [None]
  - Musculoskeletal stiffness [None]
  - Musculoskeletal stiffness [None]
  - Musculoskeletal stiffness [None]
